FAERS Safety Report 9910791 (Version 2)
Quarter: 2014Q1

REPORT INFORMATION
  Report Type: Spontaneous
  Country: JP (occurrence: JP)
  Receive Date: 20140219
  Receipt Date: 20140307
  Transmission Date: 20141002
  Serious: Yes (Other)
  Sender: FDA-Public Use
  Company Number: JP-OTSUKA-JP-2014-11096

PATIENT
  Sex: 0

DRUGS (1)
  1. PLETAAL [Suspect]
     Dosage: UNK
     Route: 048

REACTIONS (1)
  - Blood potassium decreased [Recovered/Resolved]
